FAERS Safety Report 6295100-8 (Version None)
Quarter: 2009Q3

REPORT INFORMATION
  Report Type: 
  Country: None (occurrence: None)
  Receive Date: 20090803
  Receipt Date: 20090724
  Transmission Date: 20100115
  Serious: Yes (Death)
  Sender: FDA-Public Use
  Company Number: US-ABBOTT-09P-163-0583957-00

PATIENT
  Sex: Female

DRUGS (11)
  1. HUMIRA [Suspect]
     Indication: RHEUMATOID ARTHRITIS
     Route: 058
     Dates: start: 20070101, end: 20080101
  2. PREDNISONE TAB [Concomitant]
     Indication: DRUG USE FOR UNKNOWN INDICATION
  3. FOLIC ACID [Concomitant]
     Indication: DRUG USE FOR UNKNOWN INDICATION
  4. DIFLUCAN [Concomitant]
     Indication: DRUG USE FOR UNKNOWN INDICATION
  5. TYLENOL (CAPLET) [Concomitant]
     Indication: DRUG USE FOR UNKNOWN INDICATION
  6. BENADRYL [Concomitant]
     Indication: DRUG USE FOR UNKNOWN INDICATION
  7. COLACE [Concomitant]
     Indication: DRUG USE FOR UNKNOWN INDICATION
  8. OXYCODONE [Concomitant]
     Indication: DRUG USE FOR UNKNOWN INDICATION
  9. ZOFRAN [Concomitant]
     Indication: DRUG USE FOR UNKNOWN INDICATION
  10. METHOTREXATE [Concomitant]
     Indication: RHEUMATOID ARTHRITIS
  11. MELALEUCA TREE OIL [Concomitant]
     Indication: DRUG USE FOR UNKNOWN INDICATION
     Dosage: DAILY

REACTIONS (27)
  - ANAEMIA [None]
  - ASTHENIA [None]
  - BLOOD ALBUMIN DECREASED [None]
  - BLOOD CHLORIDE INCREASED [None]
  - BLOOD GLUCOSE INCREASED [None]
  - BLOOD LACTATE DEHYDROGENASE INCREASED [None]
  - BLOOD PHOSPHORUS DECREASED [None]
  - BLOOD POTASSIUM DECREASED [None]
  - BLOOD PRESSURE DIASTOLIC DECREASED [None]
  - BLOOD SODIUM INCREASED [None]
  - CONTUSION [None]
  - DIARRHOEA [None]
  - DRY MOUTH [None]
  - FATIGUE [None]
  - HYPERSOMNIA [None]
  - HYPOPHAGIA [None]
  - INSOMNIA [None]
  - LEUKAEMIA [None]
  - LIPOMA [None]
  - NOCTURIA [None]
  - NUCLEATED RED CELLS [None]
  - PYREXIA [None]
  - RASH [None]
  - SERUM FERRITIN INCREASED [None]
  - THROMBOCYTOPENIA [None]
  - VOMITING [None]
  - WEIGHT DECREASED [None]
